FAERS Safety Report 12547457 (Version 3)
Quarter: 2016Q4

REPORT INFORMATION
  Report Type: Spontaneous
  Country: US (occurrence: US)
  Receive Date: 20160711
  Receipt Date: 20161027
  Transmission Date: 20170207
  Serious: Yes (Other)
  Sender: FDA-Public Use
  Company Number: US-ROCHE-1753577

PATIENT
  Age: 69 Year
  Sex: Male
  Weight: 70.82 kg

DRUGS (11)
  1. ESBRIET [Suspect]
     Active Substance: PIRFENIDONE
     Indication: IDIOPATHIC PULMONARY FIBROSIS
     Route: 048
     Dates: start: 20150804
  2. LEVOTHYROXINE. [Concomitant]
     Active Substance: LEVOTHYROXINE
  3. OMEPRAZOLE. [Concomitant]
     Active Substance: OMEPRAZOLE
     Dosage: DR
     Route: 065
  4. METFORMIN [Concomitant]
     Active Substance: METFORMIN HYDROCHLORIDE
  5. SIMVASTATIN. [Concomitant]
     Active Substance: SIMVASTATIN
  6. PREDNISONE. [Concomitant]
     Active Substance: PREDNISONE
  7. ESBRIET [Suspect]
     Active Substance: PIRFENIDONE
     Route: 048
     Dates: start: 20150804
  8. GEMFIBROZIL. [Concomitant]
     Active Substance: GEMFIBROZIL
  9. DICLOFENAC EC [Concomitant]
  10. ESBRIET [Suspect]
     Active Substance: PIRFENIDONE
     Route: 048
  11. HYDROXYCHLOROQUINE [Concomitant]
     Active Substance: HYDROXYCHLOROQUINE

REACTIONS (6)
  - Drug effect incomplete [Unknown]
  - Dry mouth [Unknown]
  - Gastric disorder [Unknown]
  - Nausea [Unknown]
  - Abdominal discomfort [Unknown]
  - Cataract [Unknown]

NARRATIVE: CASE EVENT DATE: 20160616
